FAERS Safety Report 7423107-3 (Version None)
Quarter: 2011Q2

REPORT INFORMATION
  Report Type: 
  Country: None (occurrence: None)
  Receive Date: 20110411
  Receipt Date: 20110330
  Transmission Date: 20111010
  Serious: Yes (Other)
  Sender: FDA-Public Use
  Company Number: LEO-2011-00299

PATIENT
  Age: 67 Year
  Sex: Female

DRUGS (3)
  1. EXFORGE [Suspect]
     Indication: HYPERTENSION
     Dosage: ORAL
     Route: 048
     Dates: start: 20101201
  2. PRAVASTATIN SODIUM [Concomitant]
  3. INNOHEP [Suspect]
     Indication: PHLEBITIS
     Dosage: 10000 IU (10000 IU), SUBCUTANEOUS
     Route: 058
     Dates: start: 20110106

REACTIONS (4)
  - PHLEBITIS [None]
  - MALAISE [None]
  - ORTHOSTATIC HYPOTENSION [None]
  - VERTIGO [None]
